FAERS Safety Report 6812712-0 (Version None)
Quarter: 2010Q3

REPORT INFORMATION
  Report Type: 
  Country: None (occurrence: None)
  Receive Date: 20100701
  Receipt Date: 20100625
  Transmission Date: 20110219
  Serious: Yes (Death, Hospitalization)
  Sender: FDA-Public Use
  Company Number: A0859843A

PATIENT
  Sex: Male
  Weight: 75 kg

DRUGS (4)
  1. ELTROMBOPAG [Suspect]
     Indication: THROMBOCYTOPENIA
     Dosage: 75MG PER DAY
     Route: 048
     Dates: start: 20090720, end: 20100104
  2. PEG-INTRON [Suspect]
     Dosage: 120MCG WEEKLY
     Route: 058
     Dates: start: 20090720, end: 20100104
  3. REBETOL [Suspect]
     Route: 048
     Dates: start: 20090720, end: 20100104
  4. ELTROMBOPAG [Suspect]
     Route: 048
     Dates: start: 20090604, end: 20090719

REACTIONS (4)
  - ABDOMINAL DISTENSION [None]
  - GINGIVAL BLEEDING [None]
  - LEUKOPENIA [None]
  - THROMBOCYTOPENIA [None]
